FAERS Safety Report 8893596 (Version 1)
Quarter: 2012Q4

REPORT INFORMATION
  Report Type: 
  Country: US (occurrence: US)
  Receive Date: 20121107
  Receipt Date: 20121107
  Transmission Date: 20130627
  Serious: No
  Sender: FDA-Public Use
  Company Number: US-AMGEN-USASP2011061411

PATIENT
  Sex: Female

DRUGS (4)
  1. ENBREL [Suspect]
     Indication: PRODUCT USED FOR UNKNOWN INDICATION
     Dosage: 50 mg, 2 times/wk
  2. AVAPRO [Concomitant]
     Dosage: 150 mg, UNK
  3. METFORMIN [Concomitant]
     Dosage: 500 mg, UNK
  4. VITAMIN D3 [Concomitant]

REACTIONS (2)
  - Headache [Unknown]
  - Injection site pain [Unknown]
